FAERS Safety Report 12544277 (Version 1)
Quarter: 2016Q3

REPORT INFORMATION
  Report Type: Spontaneous
  Country: GB (occurrence: GB)
  Receive Date: 20160711
  Receipt Date: 20160711
  Transmission Date: 20161109
  Serious: Yes (Disabling, Other)
  Sender: FDA-Public Use
  Company Number: GB-WATSON-2016-14792

PATIENT
  Age: 69 Year
  Sex: Male

DRUGS (2)
  1. COCODAMOL [Concomitant]
     Active Substance: ACETAMINOPHEN\CODEINE PHOSPHATE
     Indication: PRODUCT USED FOR UNKNOWN INDICATION
     Dosage: UNK, BID
     Route: 065
  2. CITALOPRAM [Suspect]
     Active Substance: CITALOPRAM HYDROBROMIDE
     Indication: PRODUCT USED FOR UNKNOWN INDICATION
     Dosage: 20 MG, UNK - FIRST RECEIVED 10 MG FOR ONE WEEK AND THEN 20 MG FROM LAST THREE WEEKS
     Route: 048
     Dates: start: 20160516

REACTIONS (2)
  - Visual impairment [Not Recovered/Not Resolved]
  - Headache [Unknown]
